FAERS Safety Report 6620984-0 (Version None)
Quarter: 2010Q1

REPORT INFORMATION
  Report Type: 
  Country: None (occurrence: None)
  Receive Date: 20100223
  Receipt Date: 20091125
  Transmission Date: 20100710
  Serious: No
  Sender: FDA-Public Use
  Company Number: 8053483

PATIENT
  Sex: Female
  Weight: 110 kg

DRUGS (7)
  1. CERTOLIZUMAB PEGOL [Suspect]
     Indication: CROHN'S DISEASE
     Dosage: 400 MG, DOSE FREQ.: ONCE MONTHLY (Q28 DAYS) SUBCUTANEOUS
     Route: 058
     Dates: start: 20090408
  2. CERTOLIZUMAB PEGOL [Suspect]
  3. CALCIUM W/VITAMIN D [Concomitant]
  4. GLYBURIDE [Concomitant]
  5. LISINOPRIL [Concomitant]
  6. ASACOL [Concomitant]
  7. METFORMIN HYDROCHLORIDE [Concomitant]

REACTIONS (3)
  - AGEUSIA [None]
  - BLISTER [None]
  - RASH [None]
